FAERS Safety Report 6800424-9 (Version None)
Quarter: 2010Q2

REPORT INFORMATION
  Report Type: 
  Country: None (occurrence: None)
  Receive Date: 20100629
  Receipt Date: 20100621
  Transmission Date: 20101027
  Serious: Yes (Hospitalization)
  Sender: FDA-Public Use
  Company Number: US-BIOGENIDEC-2010BI020927

PATIENT
  Age: 53 Year
  Sex: Female
  Weight: 81 kg

DRUGS (33)
  1. TYSABRI [Suspect]
     Indication: MULTIPLE SCLEROSIS
     Route: 042
     Dates: start: 20080624
  2. HYDROCODONE [Concomitant]
     Indication: PAIN
     Route: 048
  3. ACETAMINOPHEN [Concomitant]
     Indication: PAIN
     Route: 048
  4. ONDANSETRON [Concomitant]
     Route: 048
  5. CODEINE SULFATE [Concomitant]
     Indication: PAIN
     Route: 048
  6. ACETAMINOPHEN [Concomitant]
     Route: 048
  7. AMPHETAMINE AND DEXTROAMPHETAMINE SALTS [Concomitant]
     Route: 048
  8. ESTRADIOL [Concomitant]
     Route: 048
  9. DESLORATADINE [Concomitant]
     Route: 048
  10. CHOLECALCIFEROL [Concomitant]
     Route: 048
  11. ERGOCALCIFEROL [Concomitant]
     Route: 048
  12. SUMATRIPTAN SUCCINATE [Concomitant]
     Indication: HEADACHE
     Route: 048
  13. NAPROXEN [Concomitant]
     Indication: HEADACHE
     Route: 048
  14. DULOXETINE [Concomitant]
     Route: 048
  15. BACLOFEN [Concomitant]
     Route: 048
  16. NAPROXEN SODIUM [Concomitant]
     Indication: PAIN
     Route: 048
  17. TIZANIDINE [Concomitant]
     Route: 048
  18. FUROSEMIDE [Concomitant]
     Route: 048
  19. MODAFINIL [Concomitant]
     Route: 048
  20. GABAPENTIN [Concomitant]
     Route: 048
  21. DONEPEZIL HCL [Concomitant]
     Route: 048
  22. B COMPLEX VITAMINS [Concomitant]
     Route: 048
  23. MECLIZINE [Concomitant]
     Route: 048
  24. PROMETHAZINE [Concomitant]
     Route: 048
  25. OXCARBAZEPINE [Concomitant]
     Route: 048
  26. EPINEPHRINE [Concomitant]
     Route: 030
  27. MULTI-VITAMIN [Concomitant]
     Route: 048
  28. FISH OIL [Concomitant]
     Route: 048
  29. FLAXSEED OIL [Concomitant]
     Route: 048
  30. CALCIUM CARBONATE [Concomitant]
     Route: 048
  31. CRANBERRY [Concomitant]
     Route: 048
  32. BISACODYL [Concomitant]
     Route: 048
  33. ALENDRONATE [Concomitant]
     Route: 048

REACTIONS (1)
  - SPONDYLOLISTHESIS [None]
